FAERS Safety Report 18268249 (Version 2)
Quarter: 2020Q3

REPORT INFORMATION
  Report Type: Report from Study
  Country: None (occurrence: TR)
  Receive Date: 20200915
  Receipt Date: 20200916
  Transmission Date: 20201103
  Serious: Yes (Hospitalization)
  Sender: FDA-Public Use
  Company Number: TR-ABBVIE-20K-161-3565240-00

PATIENT
  Age: 73 Year
  Sex: Female
  Weight: 60 kg

DRUGS (4)
  1. MELATONIN [Concomitant]
     Active Substance: MELATONIN
     Indication: PARKINSON^S DISEASE
     Route: 048
     Dates: start: 2019
  2. DUODOPA [Suspect]
     Active Substance: CARBIDOPA\LEVODOPA
  3. DUODOPA [Suspect]
     Active Substance: CARBIDOPA\LEVODOPA
     Indication: PARKINSON^S DISEASE
     Dosage: MORNING DOSE (ML): 8.00 CONTINUOUS DOSE (ML): 4.00 EXTRA DOSE (ML): 1.00
     Route: 050
     Dates: start: 20200107
  4. DOPADEX SR [Concomitant]
     Indication: PARKINSON^S DISEASE
     Route: 048
     Dates: start: 2016

REACTIONS (2)
  - Fall [Recovered/Resolved]
  - Hip fracture [Recovered/Resolved]

NARRATIVE: CASE EVENT DATE: 20200911
